FAERS Safety Report 14170268 (Version 2)
Quarter: 2017Q4

REPORT INFORMATION
  Report Type: Report from Study
  Country: US (occurrence: US)
  Receive Date: 20171108
  Receipt Date: 20171228
  Transmission Date: 20180321
  Serious: Yes (Hospitalization)
  Sender: FDA-Public Use
  Company Number: US-JNJFOC-20171106834

PATIENT
  Age: 65 Year
  Sex: Male

DRUGS (13)
  1. CELEBREX [Concomitant]
     Active Substance: CELECOXIB
  2. WARFARIN [Concomitant]
     Active Substance: WARFARIN
  3. IMBRUVICA [Suspect]
     Active Substance: IBRUTINIB
     Indication: B-CELL LYMPHOMA
     Dosage: 420 MG, QD
     Route: 048
     Dates: start: 20170228, end: 20171007
  4. DEXILANT [Concomitant]
     Active Substance: DEXLANSOPRAZOLE
  5. IMBRUVICA [Suspect]
     Active Substance: IBRUTINIB
     Indication: CHRONIC LYMPHOCYTIC LEUKAEMIA
     Dosage: 420 MG, QD
     Route: 048
     Dates: start: 20170228, end: 20171007
  6. XANAX [Concomitant]
     Active Substance: ALPRAZOLAM
  7. DIGOXIN. [Concomitant]
     Active Substance: DIGOXIN
  8. ASPIRIN. [Concomitant]
     Active Substance: ASPIRIN
  9. SIMVASTATIN. [Concomitant]
     Active Substance: SIMVASTATIN
  10. TOPROL XL [Concomitant]
     Active Substance: METOPROLOL SUCCINATE
  11. CARDIZEM [Concomitant]
     Active Substance: DILTIAZEM HYDROCHLORIDE
  12. MULTIVITAMINS [Concomitant]
     Active Substance: VITAMINS
  13. LISINOPRIL. [Concomitant]
     Active Substance: LISINOPRIL

REACTIONS (1)
  - Pleural effusion [Recovered/Resolved]

NARRATIVE: CASE EVENT DATE: 20171006
